FAERS Safety Report 19625942 (Version 1)
Quarter: 2021Q3

REPORT INFORMATION
  Report Type: Report from Study
  Country: US (occurrence: US)
  Receive Date: 20210728
  Receipt Date: 20210728
  Transmission Date: 20211014
  Serious: Yes (Life-Threatening, Other)
  Sender: FDA-Public Use
  Company Number: US-ROCHE-2533625

PATIENT
  Age: 63 Year
  Sex: Male
  Weight: 67.1 kg

DRUGS (3)
  1. IBRUTINIB [Suspect]
     Active Substance: IBRUTINIB
     Indication: CHRONIC LYMPHOCYTIC LEUKAEMIA
     Dosage: ON DAYS 1?28 AND CYCLE 1?19, TOTAL DOSE ADMINISTERED 3360 MG?LAST DOSE ADMINISTERED 30/JUL/2019
     Route: 048
     Dates: start: 20190722
  2. VENETOCLAX. [Suspect]
     Active Substance: VENETOCLAX
     Indication: CHRONIC LYMPHOCYTIC LEUKAEMIA
     Dosage: 20 MG PO QD DAYS 1?7 CYCLE 3, 50 MG PO QD DAYS 8?14, CYCLE 3, 100 MG PO QD DAYS 15?21, CYCLE 3, 200
     Route: 048
     Dates: start: 20190722
  3. OBINUTUZUMAB. [Suspect]
     Active Substance: OBINUTUZUMAB
     Indication: CHRONIC LYMPHOCYTIC LEUKAEMIA
     Dosage: LAST DOSE ADMINISTERED ON 29/JULY/2019 (TOTAL DOSE: 2000 MG)?100 MG DAY 1, 900 MG DAY 2, 1000MG ON D
     Route: 042
     Dates: start: 20190722

REACTIONS (2)
  - Pancreatitis [Recovered/Resolved]
  - Neutrophil count decreased [Recovered/Resolved]

NARRATIVE: CASE EVENT DATE: 20190729
